FAERS Safety Report 5315192-X (Version None)
Quarter: 2007Q2

REPORT INFORMATION
  Report Type: 
  Country: None (occurrence: None)
  Receive Date: 20070502
  Receipt Date: 20070125
  Transmission Date: 20071010
  Serious: Yes (Hospitalization)
  Sender: FDA-Public Use
  Company Number: FR-PFIZER INC-2007008656

PATIENT
  Age: 65 Year
  Sex: Male

DRUGS (9)
  1. ATARAX [Suspect]
     Dosage: DAILY DOSE:75MG
     Route: 048
  2. APRANAX [Suspect]
     Dosage: TEXT:1 DF
     Route: 048
     Dates: start: 20061228, end: 20061228
  3. VALACYCLOVIR HCL [Suspect]
     Indication: HODGKIN'S DISEASE
     Dosage: TEXT:2 DF
     Route: 048
  4. METHYLPREDNISOLONE 16MG TAB [Concomitant]
     Dates: start: 20060501, end: 20061101
  5. DOXORUBICIN HYDROCHLORIDE [Concomitant]
     Dates: start: 20060501, end: 20061101
  6. BLEOMYCIN [Concomitant]
     Dates: start: 20060501, end: 20061101
  7. VINBLASTINE SULFATE [Concomitant]
     Dates: start: 20060501, end: 20061101
  8. DACARBAZINE [Concomitant]
     Dates: start: 20060501, end: 20061101
  9. RITUXIMAB [Concomitant]
     Dates: start: 20061110, end: 20061110

REACTIONS (1)
  - TOXIC SKIN ERUPTION [None]
